FAERS Safety Report 5614686-7 (Version None)
Quarter: 2008Q1

REPORT INFORMATION
  Report Type: 
  Country: None (occurrence: None)
  Receive Date: 20080131
  Receipt Date: 20080116
  Transmission Date: 20080703
  Serious: Yes (Hospitalization)
  Sender: FDA-Public Use
  Company Number: 021598

PATIENT
  Age: 54 Year
  Sex: Male
  Weight: 74.8 kg

DRUGS (16)
  1. AMPHETAMINE AND DEXTROAMPHETAMINE SALTS [Suspect]
     Indication: ANXIETY
     Dosage: 20 MG, TID, ORAL
     Route: 048
     Dates: end: 20080113
  2. AMPHETAMINE AND DEXTROAMPHETAMINE SALTS [Suspect]
     Indication: ATTENTION DEFICIT/HYPERACTIVITY DISORDER
     Dosage: 20 MG, TID, ORAL
     Route: 048
     Dates: end: 20080113
  3. AMPHETAMINE AND DEXTROAMPHETAMINE SALTS [Suspect]
     Indication: BIPOLAR DISORDER
     Dosage: 20 MG, TID, ORAL
     Route: 048
     Dates: end: 20080113
  4. CIALIS [Concomitant]
  5. CECLOR [Concomitant]
  6. DAYTRANA [Concomitant]
  7. DURAGESIC-100 [Concomitant]
  8. KLONOPIN [Concomitant]
  9. LYRICA [Concomitant]
  10. NASACORT [Concomitant]
  11. NYSTATIN [Concomitant]
  12. SOMA [Concomitant]
  13. SYNTHROID [Concomitant]
  14. VALIUM [Concomitant]
  15. ZETIA [Concomitant]
  16. ZYRTEC [Concomitant]

REACTIONS (8)
  - DYSPNOEA [None]
  - GENITAL LESION [None]
  - GENITAL RASH [None]
  - PAIN [None]
  - PNEUMONIA [None]
  - PULMONARY OEDEMA [None]
  - RASH [None]
  - RESPIRATORY FAILURE [None]
